FAERS Safety Report 23312047 (Version 1)
Quarter: 2023Q4

REPORT INFORMATION
  Report Type: Spontaneous
  Country: US (occurrence: US)
  Receive Date: 20231219
  Receipt Date: 20231219
  Transmission Date: 20240109
  Serious: Yes (Other)
  Sender: FDA-Public Use
  Company Number: US-ALEMBIC PHARMACUETICALS LIMITED-2023SCAL001220

PATIENT

DRUGS (2)
  1. LITHIUM CARBONATE [Suspect]
     Active Substance: LITHIUM CARBONATE
     Indication: Bipolar disorder
     Dosage: UNK
     Route: 065
  2. LISINOPRIL [Concomitant]
     Active Substance: LISINOPRIL
     Indication: Hypertension
     Dosage: UNK
     Route: 065

REACTIONS (9)
  - Nephropathy toxic [Unknown]
  - Chronic kidney disease [Unknown]
  - Polydipsia [Unknown]
  - Glomerular filtration rate decreased [Unknown]
  - Polyuria [Unknown]
  - Blood creatine increased [Unknown]
  - Oedema peripheral [Unknown]
  - Blood urea increased [Unknown]
  - Secondary hypertension [Unknown]
